FAERS Safety Report 4317362-6 (Version None)
Quarter: 2004Q1

REPORT INFORMATION
  Report Type: 
  Country: None (occurrence: None)
  Receive Date: 20040316
  Receipt Date: 20040316
  Transmission Date: 20041129
  Serious: Yes (Hospitalization)
  Sender: FDA-Public Use
  Company Number: None

PATIENT
  Age: 59 Year
  Sex: Male
  Weight: 72.7 kg

DRUGS (3)
  1. TICE BCG [Suspect]
     Indication: BLADDER CANCER
     Dosage: 8 CONSECUTIVE WEEKS EVERY 6 MONTHS
     Dates: start: 20010101, end: 20010101
  2. TICE BCG [Suspect]
     Indication: BLADDER CANCER
     Dosage: 8 CONSECUTIVE WEEKS EVERY 6 MONTHS
     Dates: start: 20020301, end: 20040203
  3. INTRON A [Suspect]
     Indication: BLADDER CANCER
     Dosage: 5E+07 IU INTRAVESICAL
     Route: 043
     Dates: start: 20020301, end: 20040203

REACTIONS (3)
  - SENSORY DISTURBANCE [None]
  - SEPSIS [None]
  - URINARY RETENTION [None]
